FAERS Safety Report 10515120 (Version 2)
Quarter: 2014Q4

REPORT INFORMATION
  Report Type: Spontaneous
  Country: JP (occurrence: JP)
  Receive Date: 20141014
  Receipt Date: 20141103
  Transmission Date: 20150528
  Serious: Yes (Other)
  Sender: FDA-Public Use
  Company Number: JP-ROCHE-1471862

PATIENT
  Age: 73 Year
  Sex: Female

DRUGS (5)
  1. BONVIVA [Suspect]
     Active Substance: IBANDRONATE SODIUM
     Indication: OSTEOPOROSIS
     Route: 042
     Dates: start: 20140930, end: 20140930
  2. LOXONIN [Concomitant]
     Active Substance: LOXOPROFEN SODIUM
     Dosage: DOSAGE IS UNCERTAIN.
     Route: 061
  3. MUCOSTA [Concomitant]
     Active Substance: REBAMIPIDE
     Dosage: DOSAGE IS UNCERTAIN.
     Route: 048
     Dates: start: 201310
  4. LORCAM [Concomitant]
     Active Substance: LORNOXICAM
     Route: 048
     Dates: start: 201310
  5. MYSLEE [Concomitant]
     Active Substance: ZOLPIDEM TARTRATE
     Route: 048
     Dates: start: 201310

REACTIONS (1)
  - Musculoskeletal stiffness [Not Recovered/Not Resolved]

NARRATIVE: CASE EVENT DATE: 20140930
